FAERS Safety Report 6053989-1 (Version None)
Quarter: 2009Q1

REPORT INFORMATION
  Report Type: 
  Country: None (occurrence: None)
  Receive Date: 20090127
  Receipt Date: 20090122
  Transmission Date: 20090719
  Serious: Yes (Hospitalization)
  Sender: FDA-Public Use
  Company Number: GB-BRISTOL-MYERS SQUIBB COMPANY-14417414

PATIENT
  Age: 62 Year
  Sex: Female
  Weight: 44 kg

DRUGS (3)
  1. CISPLATIN [Suspect]
     Indication: ENDOMETRIAL CANCER
     Dosage: INITIATED ON 06AUG2004 CUMULATIVE DOSE: 461MG
     Dates: start: 20041206, end: 20041206
  2. PACLITAXEL [Suspect]
     Indication: ENDOMETRIAL CANCER
     Dosage: INITIATED ON 06AUG2004 CUMULATIVE DOSE: 1638MG
     Dates: start: 20041206, end: 20041206
  3. ADRIAMYCIN PFS [Suspect]
     Indication: ENDOMETRIAL CANCER
     Dosage: INITIATED ON 06AUG2004 CUMULATIVE DOSE: 440MG
     Dates: start: 20041206, end: 20041206

REACTIONS (1)
  - CONSTIPATION [None]
